FAERS Safety Report 21544682 (Version 1)
Quarter: 2022Q4

REPORT INFORMATION
  Report Type: Spontaneous
  Country: US (occurrence: None)
  Receive Date: 20221101
  Receipt Date: 20221101
  Transmission Date: 20230113
  Serious: Yes (Other)
  Sender: FDA-Public Use
  Company Number: None

PATIENT
  Age: 40 Year
  Sex: Female

DRUGS (2)
  1. PARAGARD T 380A [Suspect]
     Active Substance: COPPER
  2. UNSPECIFIED INGREDIENT [Suspect]
     Active Substance: UNSPECIFIED INGREDIENT

REACTIONS (16)
  - Pain [None]
  - Alopecia [None]
  - Weight increased [None]
  - Insomnia [None]
  - Headache [None]
  - Nausea [None]
  - Abdominal pain upper [None]
  - Diarrhoea [None]
  - Night sweats [None]
  - Renal pain [None]
  - Fatigue [None]
  - Asthenia [None]
  - Loss of libido [None]
  - Anxiety [None]
  - Heart rate increased [None]
  - Irritability [None]

NARRATIVE: CASE EVENT DATE: 20210811
